FAERS Safety Report 9882734 (Version 1)
Quarter: 2014Q1

REPORT INFORMATION
  Report Type: Report from Study
  Country: US (occurrence: US)
  Receive Date: 20140207
  Receipt Date: 20140207
  Transmission Date: 20141002
  Serious: Yes (Other)
  Sender: FDA-Public Use
  Company Number: US-BAXTER-2014BAX005257

PATIENT
  Age: 14 Year
  Sex: Male
  Weight: 63.6 kg

DRUGS (3)
  1. GAMMAGARD LIQUID [Suspect]
     Indication: PRODUCT USED FOR UNKNOWN INDICATION
     Route: 042
     Dates: end: 201311
  2. GAMMAGARD LIQUID [Suspect]
     Route: 058
     Dates: start: 201401
  3. TYLENOL [Concomitant]
     Indication: HEADACHE
     Route: 048
     Dates: start: 2013

REACTIONS (2)
  - Viral infection [Recovered/Resolved]
  - Migraine [Recovering/Resolving]
